FAERS Safety Report 25757276 (Version 2)
Quarter: 2025Q3

REPORT INFORMATION
  Report Type: Report from Study
  Country: US (occurrence: US)
  Receive Date: 20250903
  Receipt Date: 20250908
  Transmission Date: 20251021
  Serious: Yes (Other)
  Sender: ABBVIE
  Company Number: US-ABBVIE-6440976

PATIENT
  Age: 48 Year
  Sex: Female

DRUGS (3)
  1. RINVOQ [Suspect]
     Active Substance: UPADACITINIB
     Indication: Rheumatoid arthritis
     Dosage: STRENGTH: 15MG?ON HOLD - INITIALLY HELD DUE TO HAVING LEG CRAMPS, THEN HELD DUE TO HAVING SURGERY
     Route: 048
     Dates: start: 20250529
  2. RINVOQ [Suspect]
     Active Substance: UPADACITINIB
     Indication: Rheumatoid arthritis
     Dosage: STRENGTH: 15MG?RESUMED
     Route: 048
     Dates: start: 2025
  3. RASUVO [Concomitant]
     Active Substance: METHOTREXATE SODIUM
     Indication: Product used for unknown indication

REACTIONS (4)
  - Ovarian mass [Unknown]
  - Muscle spasms [Recovered/Resolved]
  - Rheumatoid arthritis [Recovering/Resolving]
  - Intestinal mass [Unknown]

NARRATIVE: CASE EVENT DATE: 20250101
